FAERS Safety Report 18555286 (Version 1)
Quarter: 2020Q4

REPORT INFORMATION
  Report Type: Report from Study
  Country: PH (occurrence: PH)
  Receive Date: 20201127
  Receipt Date: 20201127
  Transmission Date: 20210114
  Serious: Yes (Death, Other)
  Sender: FDA-Public Use
  Company Number: PH-ASTRAZENECA-2020SF55676

PATIENT
  Sex: Female

DRUGS (1)
  1. FASLODEX [Suspect]
     Active Substance: FULVESTRANT
     Indication: HER2 NEGATIVE BREAST CANCER
     Dosage: 500.0MG UNKNOWN
     Route: 030
     Dates: start: 20200608, end: 20201009

REACTIONS (8)
  - Death [Fatal]
  - Metastases to uterus [Unknown]
  - Dyspnoea [Unknown]
  - Metastases to lung [Unknown]
  - Dizziness [Unknown]
  - Metastases to central nervous system [Unknown]
  - Asthenia [Unknown]
  - Hypoaesthesia [Unknown]
